FAERS Safety Report 7544083-9 (Version None)
Quarter: 2011Q2

REPORT INFORMATION
  Report Type: 
  Country: None (occurrence: None)
  Receive Date: 20110613
  Receipt Date: 20060207
  Transmission Date: 20111010
  Serious: Yes (Hospitalization, Other)
  Sender: FDA-Public Use
  Company Number: PHNR2005AU01734

PATIENT
  Sex: Male

DRUGS (2)
  1. CLOZAPINE [Suspect]
     Dosage: 450 MG, UNK
  2. CLOZAPINE [Suspect]
     Dosage: 900 MG, UNK
     Dates: start: 20051214, end: 20051214

REACTIONS (2)
  - LIVER FUNCTION TEST ABNORMAL [None]
  - ACCIDENTAL OVERDOSE [None]
